FAERS Safety Report 6115839-4 (Version None)
Quarter: 2009Q1

REPORT INFORMATION
  Report Type: 
  Country: None (occurrence: None)
  Receive Date: 20090311
  Receipt Date: 20090305
  Transmission Date: 20090719
  Serious: Yes (Other)
  Sender: FDA-Public Use
  Company Number: CIP09000555

PATIENT
  Age: 78 Year
  Sex: Female

DRUGS (2)
  1. ACTONEL [Suspect]
     Dosage: 35 MG ONCE WEEKLY, ORAL
     Route: 048
  2. PROTONIX /01263201/ (PANTOPRAZOLE) [Concomitant]

REACTIONS (1)
  - KNEE ARTHROPLASTY [None]
